FAERS Safety Report 7551891-7 (Version None)
Quarter: 2011Q2

REPORT INFORMATION
  Report Type: 
  Country: None (occurrence: None)
  Receive Date: 20110616
  Receipt Date: 20110608
  Transmission Date: 20111010
  Serious: Yes (Hospitalization, Other)
  Sender: FDA-Public Use
  Company Number: US-ELI_LILLY_AND_COMPANY-US201106002488

PATIENT
  Sex: Male
  Weight: 108.84 kg

DRUGS (19)
  1. BYETTA [Suspect]
     Dosage: 10 UG, BID
     Route: 058
     Dates: end: 20110201
  2. ANDROGEL [Concomitant]
     Indication: ANDROGEN DEFICIENCY
     Dosage: UNK UNK, QD
  3. FUROSEMIDE [Concomitant]
     Indication: DYSPNOEA
     Dosage: 20 MG, UNK
     Route: 048
     Dates: start: 20110401
  4. BYETTA [Suspect]
     Indication: TYPE 2 DIABETES MELLITUS
     Dosage: 5 UG, BID
     Route: 058
  5. HUMALOG [Concomitant]
     Indication: TYPE 2 DIABETES MELLITUS
     Dosage: UNK, PRN
     Route: 058
  6. ATENOLOL [Concomitant]
     Indication: PRODUCT USED FOR UNKNOWN INDICATION
     Dosage: 12.5 MG, EACH MORNING
     Route: 048
  7. LISINOPRIL [Concomitant]
     Indication: MITRAL VALVE INCOMPETENCE
     Dosage: 5 MG, EACH MORNING
     Route: 048
     Dates: end: 20110604
  8. GLIPIZIDE [Concomitant]
     Indication: TYPE 2 DIABETES MELLITUS
     Dosage: 10 MG, EACH MORNING
  9. PRAVASTATIN [Concomitant]
     Indication: PRODUCT USED FOR UNKNOWN INDICATION
     Dosage: 40 MG, EACH EVENING
     Route: 048
  10. PRADAXA [Concomitant]
     Indication: PRODUCT USED FOR UNKNOWN INDICATION
     Dosage: 150 MG, BID
     Route: 048
     Dates: start: 20110501
  11. FUROSEMIDE [Concomitant]
     Dosage: 20 MG, UNK
     Route: 048
  12. LANTUS [Concomitant]
     Indication: TYPE 2 DIABETES MELLITUS
     Dosage: UNK, EACH EVENING
     Route: 058
  13. FUROSEMIDE [Concomitant]
     Dosage: 40 MG, UNK
     Route: 048
  14. ACTOS [Concomitant]
     Indication: TYPE 2 DIABETES MELLITUS
     Dosage: UNK
     Dates: end: 20110405
  15. FAMOTIDINE [Concomitant]
     Indication: PRODUCT USED FOR UNKNOWN INDICATION
     Dosage: 20 MG, UNK
     Route: 048
  16. BYETTA [Suspect]
     Dosage: 5 UG, BID
     Route: 058
  17. CITRUCEL [Concomitant]
     Indication: PRODUCT USED FOR UNKNOWN INDICATION
     Dosage: UNK
     Route: 048
  18. BYETTA [Suspect]
     Dosage: 10 UG, UNK
     Route: 058
     Dates: start: 20110602
  19. PLAVIX [Concomitant]
     Indication: PRODUCT USED FOR UNKNOWN INDICATION
     Dosage: UNK
     Route: 048
     Dates: end: 20110501

REACTIONS (22)
  - KNEE OPERATION [None]
  - DYSPNOEA [None]
  - BLOOD GLUCOSE INCREASED [None]
  - CARDIAC DISORDER [None]
  - DECREASED APPETITE [None]
  - DYSPEPSIA [None]
  - ANAEMIA [None]
  - BLOOD UREA INCREASED [None]
  - OFF LABEL USE [None]
  - ASPARTATE AMINOTRANSFERASE INCREASED [None]
  - WEIGHT INCREASED [None]
  - HEART RATE DECREASED [None]
  - DYSPHAGIA [None]
  - CONSTIPATION [None]
  - BLOOD CREATININE INCREASED [None]
  - PROSTATIC SPECIFIC ANTIGEN INCREASED [None]
  - ATRIAL FLUTTER [None]
  - BLOOD GLUCOSE DECREASED [None]
  - GLYCOSYLATED HAEMOGLOBIN INCREASED [None]
  - MALAISE [None]
  - DIZZINESS [None]
  - WEIGHT DECREASED [None]
